FAERS Safety Report 4816951-X (Version None)
Quarter: 2005Q4

REPORT INFORMATION
  Report Type: 
  Country: None (occurrence: None)
  Receive Date: 20051031
  Receipt Date: 20051031
  Transmission Date: 20060501
  Serious: No
  Sender: FDA-Public Use
  Company Number: None

PATIENT
  Sex: Female
  Weight: 90.7194 kg

DRUGS (14)
  1. QUININE SULFATE [Suspect]
     Indication: MUSCLE SPASMS
     Dosage: 260 MG PO PRN
     Route: 048
     Dates: start: 19990101, end: 20050422
  2. SYNTHROID [Concomitant]
  3. EVISTA [Concomitant]
  4. PRILOSEC [Concomitant]
  5. CA/MG/ZN [Concomitant]
  6. NIACIN [Concomitant]
  7. OMEGE 3 [Concomitant]
  8. VIT C [Concomitant]
  9. VIT E [Concomitant]
  10. MULTI-VITAMIN [Concomitant]
  11. ULTRAM [Concomitant]
  12. TRAZODONE HCL [Concomitant]
  13. LECITIN [Concomitant]
  14. FLAX SEED [Concomitant]

REACTIONS (4)
  - ACUTE MYOCARDIAL INFARCTION [None]
  - DIALYSIS [None]
  - DISSEMINATED INTRAVASCULAR COAGULATION [None]
  - RENAL FAILURE ACUTE [None]
